FAERS Safety Report 9528111 (Version 1)
Quarter: 2013Q1

REPORT INFORMATION
  Report Type: Spontaneous
  Country: US (occurrence: None)
  Receive Date: 20130314
  Receipt Date: 20130314
  Transmission Date: 20140127
  Serious: No
  Sender: FDA-Public Use
  Company Number: 1212USA010727

PATIENT
  Sex: Male

DRUGS (7)
  1. VICTRELIS [Suspect]
     Dosage: 800 MG, TID, ORAL
     Route: 048
  2. RIBAPAK [Suspect]
     Dosage: 1000 PER DAY
  3. PEGASYS [Suspect]
  4. METFORMIN (METFORMIN) TABLET, 1000 MG [Concomitant]
  5. LISINOPRIL (LISINOPRIL) TABLET, 10 MG [Concomitant]
  6. TRAMADOL HYDROCHLORIDE  (TRAMADOL HYDROCHLORIDE) TABLET, 50 MG [Concomitant]
  7. METHADONE HYDROCHLORIDE (METHADONE HYDROCHLORIDE) TABLET, 10 MG [Concomitant]

REACTIONS (4)
  - Constipation [None]
  - Rash [None]
  - Rash [None]
  - Nausea [None]
